FAERS Safety Report 11990129 (Version 1)
Quarter: 2016Q1

REPORT INFORMATION
  Report Type: Spontaneous
  Country: US (occurrence: US)
  Receive Date: 20160202
  Receipt Date: 20160202
  Transmission Date: 20160526
  Serious: No
  Sender: FDA-Public Use
  Company Number: US-ROCHE-1555902

PATIENT
  Age: 1 Year
  Sex: Female
  Weight: 9.08 kg

DRUGS (5)
  1. ZEMPLAR [Concomitant]
     Active Substance: PARICALCITOL
     Route: 048
     Dates: start: 20150123
  2. DOCUSATE SODIUM. [Concomitant]
     Active Substance: DOCUSATE SODIUM
     Route: 048
     Dates: start: 20150123
  3. FERROUS SULFATE [Concomitant]
     Active Substance: FERROUS SULFATE\FERROUS SULFATE, DRIED
     Route: 048
     Dates: start: 20150123
  4. LEVOTHYROXINE SODIUM. [Concomitant]
     Active Substance: LEVOTHYROXINE SODIUM
     Route: 048
     Dates: start: 20150123
  5. NUTROPIN AQ [Suspect]
     Active Substance: SOMATROPIN
     Indication: NEPHROPATHY
     Route: 058
     Dates: start: 20141128

REACTIONS (1)
  - Hypertension [Recovering/Resolving]

NARRATIVE: CASE EVENT DATE: 20150311
